FAERS Safety Report 5165617-8 (Version None)
Quarter: 2006Q4

REPORT INFORMATION
  Report Type: 
  Country: None (occurrence: None)
  Receive Date: 20061206
  Receipt Date: 20061115
  Transmission Date: 20070319
  Serious: Yes (Hospitalization)
  Sender: FDA-Public Use
  Company Number: JP-MERCK-0612USA00150

PATIENT
  Age: 73 Year
  Sex: Male
  Weight: 60 kg

DRUGS (6)
  1. STROMECTOL [Suspect]
     Indication: ACARODERMATITIS
     Route: 048
     Dates: start: 20061106, end: 20061106
  2. STROMECTOL [Suspect]
     Route: 048
     Dates: start: 20061120, end: 20061120
  3. ADALAT [Concomitant]
     Route: 048
     Dates: start: 20040101
  4. PANALDINE [Concomitant]
     Route: 048
     Dates: start: 20040101
  5. URSO [Concomitant]
     Indication: CHOLELITHIASIS
     Route: 048
     Dates: start: 20051126
  6. EURAX [Concomitant]
     Indication: ACARODERMATITIS
     Route: 061
     Dates: start: 20061106, end: 20061117

REACTIONS (3)
  - BLISTER [None]
  - ERYTHEMA [None]
  - HYPERSENSITIVITY [None]
